FAERS Safety Report 14917057 (Version 1)
Quarter: 2018Q2

REPORT INFORMATION
  Report Type: Spontaneous
  Country: GB (occurrence: GB)
  Receive Date: 20180520
  Receipt Date: 20180520
  Transmission Date: 20180711
  Serious: Yes (Hospitalization)
  Sender: FDA-Public Use
  Company Number: GB-TEVA-2018-GB-894076

PATIENT
  Age: 52 Year
  Sex: Female

DRUGS (4)
  1. FLUCLOXACILLIN [Suspect]
     Active Substance: FLUCLOXACILLIN
     Indication: HORDEOLUM
     Dosage: 2000 MILLIGRAM DAILY;
     Route: 048
     Dates: start: 20170911, end: 20170918
  2. CHLORAMPHENICOL [Suspect]
     Active Substance: CHLORAMPHENICOL
     Indication: HORDEOLUM
     Route: 061
     Dates: start: 20170915
  3. AMOXICILLIN W/CLAVULANIC ACID [Suspect]
     Active Substance: AMOXICILLIN\CLAVULANIC ACID
     Indication: HORDEOLUM
     Dosage: 500/125MG
     Route: 048
     Dates: start: 20170927, end: 20171004
  4. OMEPRAZOLE. [Concomitant]
     Active Substance: OMEPRAZOLE
     Dosage: 40 MILLIGRAM DAILY;
     Route: 048

REACTIONS (3)
  - Jaundice [Recovered/Resolved]
  - Liver function test increased [Recovering/Resolving]
  - Pruritus generalised [Recovered/Resolved]

NARRATIVE: CASE EVENT DATE: 20171009
